FAERS Safety Report 24403178 (Version 1)
Quarter: 2024Q4

REPORT INFORMATION
  Report Type: Report from Study
  Country: IT (occurrence: IT)
  Receive Date: 20241007
  Receipt Date: 20241007
  Transmission Date: 20250115
  Serious: No
  Sender: ROCHE
  Company Number: IT-ROCHE-2664809

PATIENT
  Age: 52 Year
  Sex: Male

DRUGS (2)
  1. OBINUTUZUMAB [Suspect]
     Active Substance: OBINUTUZUMAB
     Indication: Follicular lymphoma
     Dosage: LAST DOSE OF OBINUTUZUMAB (1000MG) WAS ADMINISTERED ON 24/NOV/2021.
     Route: 042
     Dates: start: 20200626
  2. METHOTREXATE [Concomitant]
     Active Substance: METHOTREXATE

REACTIONS (6)
  - Off label use [Unknown]
  - Abdominal pain [Recovered/Resolved]
  - COVID-19 [Recovered/Resolved]
  - Pyrexia [Not Recovered/Not Resolved]
  - Dyspepsia [Recovered/Resolved]
  - Amnesia [Recovered/Resolved]

NARRATIVE: CASE EVENT DATE: 20200814
